FAERS Safety Report 23778436 (Version 2)
Quarter: 2024Q4

REPORT INFORMATION
  Report Type: Spontaneous
  Country: CA (occurrence: CA)
  Receive Date: 20240424
  Receipt Date: 20241126
  Transmission Date: 20250115
  Serious: No
  Sender: ORGANON
  Company Number: CA-ORGANON-O2404CAN002846

PATIENT
  Age: 5 Year
  Sex: Male

DRUGS (4)
  1. SINGULAIR [Suspect]
     Active Substance: MONTELUKAST SODIUM
     Indication: Abdominal pain
     Dosage: UNK
     Route: 065
  2. SINGULAIR [Suspect]
     Active Substance: MONTELUKAST SODIUM
     Indication: Type IV hypersensitivity reaction
  3. CROMOLYN SODIUM [Suspect]
     Active Substance: CROMOLYN SODIUM
     Indication: Abdominal pain
     Dosage: UNK
     Route: 065
  4. CROMOLYN SODIUM [Suspect]
     Active Substance: CROMOLYN SODIUM
     Indication: Type IV hypersensitivity reaction

REACTIONS (1)
  - Drug ineffective [Unknown]
